FAERS Safety Report 15683155 (Version 1)
Quarter: 2018Q4

REPORT INFORMATION
  Report Type: Spontaneous
  Country: US (occurrence: US)
  Receive Date: 20181204
  Receipt Date: 20181204
  Transmission Date: 20190205
  Serious: No
  Sender: FDA-Public Use
  Company Number: US-ELI_LILLY_AND_COMPANY-US201811014030

PATIENT
  Sex: Female
  Weight: 126 kg

DRUGS (3)
  1. ADCIRCA [Suspect]
     Active Substance: TADALAFIL
     Indication: PRODUCT USED FOR UNKNOWN INDICATION
     Dosage: UNK UNK, UNKNOWN
     Route: 065
  2. TYVASO [Suspect]
     Active Substance: TREPROSTINIL
     Indication: PULMONARY ARTERIAL HYPERTENSION
     Dosage: 10-20 BREATHS INHALED
     Dates: start: 20180807
  3. ADCIRCA [Suspect]
     Active Substance: TADALAFIL
     Dosage: UNK, DAILY
     Route: 065

REACTIONS (1)
  - Haematuria [Unknown]
